FAERS Safety Report 4722796-1 (Version None)
Quarter: 2005Q3

REPORT INFORMATION
  Report Type: 
  Country: None (occurrence: None)
  Receive Date: 20050722
  Receipt Date: 20050715
  Transmission Date: 20060218
  Serious: Yes (Other)
  Sender: FDA-Public Use
  Company Number: 200515796US

PATIENT
  Sex: Male

DRUGS (8)
  1. AMARYL [Suspect]
     Indication: DIABETES MELLITUS NON-INSULIN-DEPENDENT
     Dates: start: 20050201
  2. AVANDIA [Suspect]
     Indication: DIABETES MELLITUS NON-INSULIN-DEPENDENT
     Dates: start: 20050201
  3. LISINOPRIL [Concomitant]
     Dosage: DOSE: UNK
  4. CARVEDILOL [Concomitant]
     Dosage: DOSE: UNK
  5. FRUSEMIDE [Concomitant]
     Dosage: DOSE: UNK
  6. ALFUZOSIN [Concomitant]
     Dosage: DOSE: UNK
  7. ASPIRIN [Concomitant]
     Dosage: DOSE: UNK
  8. METAGLIP [Concomitant]
     Dosage: DOSE: UNK

REACTIONS (4)
  - DRUG INEFFECTIVE [None]
  - DYSPNOEA [None]
  - FLUID RETENTION [None]
  - HYPOGLYCAEMIA [None]
